FAERS Safety Report 10582434 (Version 2)
Quarter: 2014Q4

REPORT INFORMATION
  Report Type: Spontaneous
  Country: AR (occurrence: AR)
  Receive Date: 20141113
  Receipt Date: 20141113
  Transmission Date: 20150529
  Serious: Yes (Death, Hospitalization)
  Sender: FDA-Public Use
  Company Number: AR-ONYX-2014-2413

PATIENT
  Age: 81 Year
  Sex: Male

DRUGS (7)
  1. KYPROLIS [Suspect]
     Active Substance: CARFILZOMIB
     Indication: PLASMA CELL MYELOMA
     Route: 042
     Dates: start: 20140527, end: 20140925
  2. PANTOPRAZOLE [Concomitant]
     Active Substance: PANTOPRAZOLE SODIUM
     Indication: HIATUS HERNIA
  3. DICLOFENAC-DEXTROPROPOXYPHENE [Concomitant]
     Indication: BONE PAIN
  4. ACICLOVIR [Concomitant]
     Active Substance: ACYCLOVIR
     Indication: ANTIVIRAL TREATMENT
  5. PREGABALINE [Concomitant]
     Active Substance: PREGABALIN
     Indication: NEUROPATHY PERIPHERAL
  6. VITAMINE B [Concomitant]
     Indication: NEUROPATHY PERIPHERAL
  7. DICLOFENAC-DEXTROPROPOXYPHENE [Concomitant]
     Indication: BONE PAIN

REACTIONS (3)
  - Cardiac failure [Fatal]
  - Plasma cell myeloma [Fatal]
  - Acute pulmonary oedema [Fatal]
